FAERS Safety Report 6562936-5 (Version None)
Quarter: 2010Q1

REPORT INFORMATION
  Report Type: 
  Country: None (occurrence: None)
  Receive Date: 20100130
  Receipt Date: 20091123
  Transmission Date: 20100710
  Serious: No
  Sender: FDA-Public Use
  Company Number: US-ABBOTT-09P-163-0611327-00

PATIENT
  Sex: Male

DRUGS (5)
  1. HUMIRA [Suspect]
     Indication: PSORIATIC ARTHROPATHY
     Route: 058
     Dates: start: 20071101, end: 20080101
  2. HUMIRA [Suspect]
     Route: 058
     Dates: start: 20080101
  3. ENALAPRIL MALEATE [Concomitant]
     Indication: HYPERTENSION
  4. EFFEXOR [Concomitant]
     Indication: DEPRESSION
  5. UNKNOWN MEDICATION FOR SLEEP [Concomitant]
     Indication: INSOMNIA

REACTIONS (3)
  - DRUG EFFECT DECREASED [None]
  - INJECTION SITE PAIN [None]
  - PARAESTHESIA [None]
